FAERS Safety Report 16071895 (Version 1)
Quarter: 2019Q1

REPORT INFORMATION
  Report Type: Spontaneous
  Country: US (occurrence: US)
  Receive Date: 20190314
  Receipt Date: 20190314
  Transmission Date: 20190418
  Serious: No
  Sender: FDA-Public Use
  Company Number: US-BAYER-2019-047318

PATIENT
  Age: 55 Year
  Sex: Female

DRUGS (19)
  1. AMLODIPINE [Concomitant]
     Active Substance: AMLODIPINE BESYLATE
  2. BUPROPION. [Concomitant]
     Active Substance: BUPROPION
  3. LORATADINE. [Concomitant]
     Active Substance: LORATADINE
  4. NYSTATIN. [Concomitant]
     Active Substance: NYSTATIN
  5. PREMARIN [Suspect]
     Active Substance: ESTROGENS, CONJUGATED
     Indication: HYSTERECTOMY
     Dosage: 1.25 MG
     Dates: start: 198107
  6. CALCIUM CARBONATE/VITAMIN D3 [Concomitant]
     Active Substance: CALCIUM CARBONATE\CHOLECALCIFEROL
  7. FLUTICASONE. [Concomitant]
     Active Substance: FLUTICASONE
  8. LEVOTHYROXINE. [Concomitant]
     Active Substance: LEVOTHYROXINE
  9. MAGNESIUM [Concomitant]
     Active Substance: MAGNESIUM
  10. TIOTROPIUM BROMIDE MONOHYDRATE [Concomitant]
     Active Substance: TIOTROPIUM BROMIDE MONOHYDRATE
  11. ONDANSETRON [Concomitant]
     Active Substance: ONDANSETRON
  12. ALBUTEROL [SALBUTAMOL SULFATE] [Concomitant]
     Active Substance: ALBUTEROL SULFATE
  13. ATENOLOL. [Concomitant]
     Active Substance: ATENOLOL
  14. MECLIZINE [Concomitant]
     Active Substance: MECLIZINE HYDROCHLORIDE
  15. GLIMEPIRIDE. [Concomitant]
     Active Substance: GLIMEPIRIDE
  16. LOSARTAN. [Concomitant]
     Active Substance: LOSARTAN
  17. ALEVE [Suspect]
     Active Substance: NAPROXEN SODIUM
     Dosage: UNK
  18. MUPIROCIN. [Concomitant]
     Active Substance: MUPIROCIN
  19. PREGABALIN. [Concomitant]
     Active Substance: PREGABALIN

REACTIONS (2)
  - Drug hypersensitivity [Unknown]
  - Swelling [Unknown]

NARRATIVE: CASE EVENT DATE: 20080916
